FAERS Safety Report 25105891 (Version 3)
Quarter: 2025Q2

REPORT INFORMATION
  Report Type: Report from Study
  Country: KR (occurrence: KR)
  Receive Date: 20250321
  Receipt Date: 20250411
  Transmission Date: 20250717
  Serious: Yes (Hospitalization)
  Sender: ROCHE
  Company Number: KR-CHUGAI-2025008271

PATIENT
  Age: 49 Year
  Sex: Male
  Weight: 62.3 kg

DRUGS (20)
  1. HEMLIBRA [Suspect]
     Active Substance: EMICIZUMAB-KXWH
     Indication: Haemophilia A without inhibitors
     Dosage: 3 MILLIGRAM/KILOGRAM, ONCE/WEEK
     Route: 058
     Dates: start: 20240627, end: 20240718
  2. HEMLIBRA [Suspect]
     Active Substance: EMICIZUMAB-KXWH
     Dosage: 3 MILLIGRAM/KILOGRAM, ONCE/2WEEKS
     Route: 058
     Dates: start: 20240725
  3. DIMENHYDRINATE [Concomitant]
     Active Substance: DIMENHYDRINATE
     Indication: Meniere^s disease
     Dosage: 50 MILLIGRAM, BID
     Route: 050
     Dates: start: 20240620, end: 20250215
  4. FLUOXETINE [Concomitant]
     Active Substance: FLUOXETINE HYDROCHLORIDE
     Indication: Adjustment disorder
     Dosage: 10 MILLIGRAM, QD
     Route: 050
     Dates: start: 20240531, end: 20250215
  5. XANAX XR [Concomitant]
     Active Substance: ALPRAZOLAM
     Indication: Adjustment disorder
     Dosage: 0.375 MILLIGRAM, QD
     Route: 050
     Dates: start: 20240531, end: 20250215
  6. EPILATAM [Concomitant]
     Indication: Epilepsy
     Dosage: 500 MILLIGRAM, BID
     Route: 050
     Dates: start: 20240523, end: 20250215
  7. LAMIART [Concomitant]
     Indication: Epilepsy
     Dosage: 125 MILLIGRAM, BID
     Route: 050
     Dates: start: 20240523, end: 20250215
  8. TRILEPTAL [Concomitant]
     Active Substance: OXCARBAZEPINE
     Indication: Epilepsy
     Dosage: 450 MILLIGRAM, BID
     Route: 050
     Dates: start: 20240523, end: 20250215
  9. CHOLINE ALFOSCERATE [Concomitant]
     Active Substance: CHOLINE ALFOSCERATE
     Indication: Encephalomalacia
     Dosage: 400 MILLIGRAM, BID
     Route: 050
     Dates: start: 20240523, end: 20250215
  10. SUMATRIPTAN [Concomitant]
     Active Substance: SUMATRIPTAN
     Indication: Headache
     Dosage: 50 MILLIGRAM, BID
     Route: 050
     Dates: start: 20240523, end: 20250215
  11. WITH [Concomitant]
     Indication: Irritable bowel syndrome
     Dosage: 50 MILLIGRAM, TID
     Route: 050
     Dates: start: 20240521, end: 20250215
  12. HERBALS [Concomitant]
     Active Substance: HERBALS
     Indication: Irritable bowel syndrome
     Dosage: 30 MILLIGRAM, TID
     Route: 050
     Dates: start: 20240521, end: 20250215
  13. MAGNESIUM HYDROXIDE [Concomitant]
     Active Substance: MAGNESIUM HYDROXIDE
     Indication: Irritable bowel syndrome
     Dosage: 250 MILLIGRAM, TID
     Route: 050
     Dates: start: 20240521, end: 20250215
  14. GANAKHAN [Concomitant]
     Indication: Irritable bowel syndrome
     Dosage: 50 MILLIGRAM, TID
     Route: 050
     Dates: start: 20240421, end: 20250215
  15. SILCON [Concomitant]
     Indication: Irritable bowel syndrome
     Dosage: 1250 MILLIGRAM, TID
     Route: 050
     Dates: start: 20240521, end: 20250215
  16. MOVIZOLO [Concomitant]
     Indication: Irritable bowel syndrome
     Dosage: 2 MILLIGRAM, QD
     Route: 050
     Dates: start: 20240521, end: 20250215
  17. CELEBREX [Concomitant]
     Active Substance: CELECOXIB
     Indication: Foot fracture
     Dosage: 200 MILLIGRAM, BID
     Route: 050
     Dates: start: 20240627, end: 20250215
  18. MUCOSOL [Concomitant]
     Active Substance: ACETYLCYSTEINE
     Indication: Rhinitis allergic
     Dosage: 8 MILLIGRAM, TID
     Route: 050
     Dates: start: 20240822, end: 20240906
  19. PENIRAMIN [Concomitant]
     Indication: Rhinitis allergic
     Dosage: 2 MILLIGRAM, TID
     Route: 050
     Dates: start: 20240822, end: 20240906
  20. LEVODROPROPIZINE [Concomitant]
     Active Substance: LEVODROPROPIZINE
     Indication: Rhinitis allergic
     Dosage: 60 MILLIGRAM, TID
     Route: 050
     Dates: start: 20240822, end: 20240906

REACTIONS (2)
  - Haemorrhage intracranial [Recovering/Resolving]
  - Joint microhaemorrhage [Recovered/Resolved]

NARRATIVE: CASE EVENT DATE: 20241202
